FAERS Safety Report 15002698 (Version 2)
Quarter: 2018Q2

REPORT INFORMATION
  Report Type: Spontaneous
  Country: US (occurrence: US)
  Receive Date: 20180612
  Receipt Date: 20180627
  Transmission Date: 20180711
  Serious: Yes (Life-Threatening, Hospitalization, Other)
  Sender: FDA-Public Use
  Company Number: PHHY2018US015490

PATIENT
  Age: 40 Year
  Sex: Female

DRUGS (3)
  1. PREDNISONE. [Suspect]
     Active Substance: PREDNISONE
     Indication: LUPUS NEPHRITIS
     Dosage: 20 MG, UNK, FOR MANY YEARS
     Route: 065
  2. MYCOPHENOLATE MOFETIL. [Suspect]
     Active Substance: MYCOPHENOLATE MOFETIL
     Indication: LUPUS NEPHRITIS
     Dosage: STARTED APPROXIMATELY 2 MONTHS PRIOR TO PRESENTATION
     Route: 065
  3. DOXYCYCLINE. [Concomitant]
     Active Substance: DOXYCYCLINE
     Indication: STAPHYLOCOCCAL INFECTION
     Route: 065

REACTIONS (8)
  - Sinusitis bacterial [Recovering/Resolving]
  - Disseminated tuberculosis [Not Recovered/Not Resolved]
  - Meningitis tuberculous [Not Recovered/Not Resolved]
  - Headache [Recovering/Resolving]
  - Mycobacterial infection [Not Recovered/Not Resolved]
  - Paranasal sinus discomfort [Unknown]
  - Pyrexia [Recovering/Resolving]
  - Chills [Unknown]
